FAERS Safety Report 6601471-2 (Version None)
Quarter: 2010Q1

REPORT INFORMATION
  Report Type: 
  Country: None (occurrence: None)
  Receive Date: 20100225
  Receipt Date: 20100202
  Transmission Date: 20100710
  Serious: Yes (Other)
  Sender: FDA-Public Use
  Company Number: US-BAYER-201011559BCC

PATIENT
  Age: 87 Year
  Sex: Female
  Weight: 49 kg

DRUGS (7)
  1. ASPIRIN [Suspect]
     Indication: ISCHAEMIC HEART DISEASE PROPHYLAXIS
     Dosage: TOTAL DAILY DOSE: 162 MG  UNIT DOSE: 81 MG
     Route: 048
     Dates: start: 20100201
  2. ADVIL [Concomitant]
     Indication: HEADACHE
     Dosage: TOTAL DAILY DOSE: 1 DF  UNIT DOSE: 1 DF
     Route: 065
     Dates: start: 20100201
  3. DIOVAN [Concomitant]
     Route: 065
  4. CALTRATE 600 D [Concomitant]
     Route: 065
  5. CENTRUM SILVER [Concomitant]
     Route: 065
  6. FINEST NATURAL VITAMIN B12 [Concomitant]
     Route: 065
  7. LUDEN'S CHERRY THROAT DROPS [Concomitant]
     Route: 065

REACTIONS (2)
  - ABDOMINAL PAIN UPPER [None]
  - VAGINAL HAEMORRHAGE [None]
